FAERS Safety Report 9233889 (Version 1)
Quarter: 2013Q2

REPORT INFORMATION
  Report Type: Spontaneous
  Country: US (occurrence: US)
  Receive Date: 20130416
  Receipt Date: 20130416
  Transmission Date: 20140414
  Serious: No
  Sender: FDA-Public Use
  Company Number: US-MYLANLABS-2012S1009681

PATIENT
  Age: 37 Year
  Sex: Female

DRUGS (1)
  1. METHIMAZOLE TABLETS [Suspect]
     Indication: HYPERTHYROIDISM
     Route: 048
     Dates: start: 201110

REACTIONS (2)
  - Erythema [Not Recovered/Not Resolved]
  - Unevaluable event [Not Recovered/Not Resolved]
